FAERS Safety Report 23857707 (Version 1)
Quarter: 2024Q2

REPORT INFORMATION
  Report Type: Spontaneous
  Country: US (occurrence: US)
  Receive Date: 20240515
  Receipt Date: 20240515
  Transmission Date: 20240716
  Serious: No
  Sender: FDA-Public Use
  Company Number: US-Kiniksa Pharmaceuticals Ltd.-2023KPU000923

PATIENT
  Age: 54 Year
  Sex: Male

DRUGS (1)
  1. ARCALYST [Suspect]
     Active Substance: RILONACEPT
     Indication: Product used for unknown indication
     Route: 058
     Dates: start: 202205, end: 20230915

REACTIONS (4)
  - Product formulation issue [Unknown]
  - Product dose omission issue [Unknown]
  - Product complaint [Unknown]
  - Pericarditis [Unknown]

NARRATIVE: CASE EVENT DATE: 20230922
